FAERS Safety Report 9935533 (Version 3)
Quarter: 2014Q1

REPORT INFORMATION
  Report Type: Spontaneous
  Country: JP (occurrence: JP)
  Receive Date: 20140228
  Receipt Date: 20140325
  Transmission Date: 20141002
  Serious: Yes (Death, Hospitalization)
  Sender: FDA-Public Use
  Company Number: JP-WATSON-2014-00492

PATIENT
  Age: 81 Year
  Sex: Male

DRUGS (13)
  1. RAPAFLO (WATSON LABORATORIES) [Suspect]
     Indication: DYSURIA
     Dosage: 8 MG, UNKNOWN
     Route: 048
     Dates: start: 20131218, end: 20140103
  2. NEXIUM /01479302/ [Suspect]
     Indication: PROPHYLAXIS AGAINST GASTROINTESTINAL ULCER
     Dosage: 10 MG, UNKNOWN
     Route: 048
     Dates: start: 20131203, end: 20140103
  3. OLMETEC [Suspect]
     Indication: CARDIAC FAILURE
     Dosage: 20 MG, UNK
     Route: 048
     Dates: start: 20131216, end: 20140103
  4. BAYASPIRIN [Concomitant]
     Indication: THROMBOSIS PROPHYLAXIS
     Dosage: 100 MG, UNK
     Route: 048
     Dates: start: 20131127
  5. MAGLAX [Concomitant]
     Indication: CONSTIPATION
     Dosage: 1980 MG, UNK
     Route: 048
     Dates: start: 20131202
  6. VASOLAN                            /00014302/ [Concomitant]
     Indication: ATRIAL FIBRILLATION
     Dosage: 80 MG, UNK
     Route: 048
     Dates: start: 20131203
  7. WARFARIN POTASSIUM [Concomitant]
     Indication: THROMBOSIS PROPHYLAXIS
     Dosage: 3 MG, UNK
     Route: 048
     Dates: start: 20131203
  8. ARTIST [Concomitant]
     Indication: CARDIAC FAILURE
     Dosage: 1.25 MG, UNK
     Route: 048
     Dates: start: 20131204
  9. LASIX                              /00032601/ [Concomitant]
     Indication: CARDIAC FAILURE
     Dosage: 20 MG, UNK
     Route: 048
     Dates: start: 20131207
  10. PLETAAL [Concomitant]
     Indication: THROMBOSIS PROPHYLAXIS
     Dosage: 200 MG, UNK
     Route: 048
     Dates: start: 20131210
  11. ANCARON [Concomitant]
     Indication: ATRIAL FIBRILLATION
     Dosage: 200 MG, UNK
     Route: 048
     Dates: start: 20131212
  12. ALDACTONE                          /00006201/ [Concomitant]
     Indication: CARDIAC FAILURE
     Dosage: 50 MG, UNK
     Route: 048
     Dates: start: 20131213, end: 20140103
  13. RENIVACE [Concomitant]
     Indication: HYPERTENSION
     Dosage: 2.5 MG, UNK
     Route: 048
     Dates: start: 20131203, end: 20131216

REACTIONS (3)
  - Death [Fatal]
  - Renal failure acute [Fatal]
  - Off label use [Fatal]
